FAERS Safety Report 9146679 (Version 1)
Quarter: 2013Q1

REPORT INFORMATION
  Report Type: Spontaneous
  Country: US (occurrence: None)
  Receive Date: 20130228
  Receipt Date: 20130228
  Transmission Date: 20140127
  Serious: Yes (Other)
  Sender: FDA-Public Use
  Company Number: None

PATIENT
  Sex: Female

DRUGS (1)
  1. STIVARGA [Suspect]
     Indication: COLON CANCER
     Dosage: 40 MG TABS 160 MG A D PO
     Route: 048
     Dates: start: 20121214

REACTIONS (1)
  - Palmar-plantar erythrodysaesthesia syndrome [None]
